FAERS Safety Report 11419696 (Version 2)
Quarter: 2015Q4

REPORT INFORMATION
  Report Type: Spontaneous
  Country: FR (occurrence: FR)
  Receive Date: 20150826
  Receipt Date: 20151015
  Transmission Date: 20160304
  Serious: Yes (Other)
  Sender: FDA-Public Use
  Company Number: FR-SA-2015SA126324

PATIENT
  Sex: Female

DRUGS (3)
  1. ENBREL [Suspect]
     Active Substance: ETANERCEPT
     Indication: EXPOSURE VIA PARTNER
     Route: 065
  2. CERAZETTE [Suspect]
     Active Substance: DESOGESTREL
     Route: 065
  3. ARAVA [Suspect]
     Active Substance: LEFLUNOMIDE
     Indication: EXPOSURE VIA PARTNER
     Route: 065

REACTIONS (2)
  - Exposure via partner [Unknown]
  - Foetal death [Unknown]

NARRATIVE: CASE EVENT DATE: 201404
